FAERS Safety Report 6756314-3 (Version None)
Quarter: 2010Q2

REPORT INFORMATION
  Report Type: 
  Country: None (occurrence: None)
  Receive Date: 20100604
  Receipt Date: 20100513
  Transmission Date: 20101027
  Serious: Yes (Other)
  Sender: FDA-Public Use
  Company Number: PHHY2010CL33576

PATIENT
  Age: 19 Year
  Sex: Male

DRUGS (3)
  1. LETROZOLE [Suspect]
     Dosage: 1.5 MG/DAY
     Route: 048
  2. LETROZOLE [Suspect]
     Dosage: 2.5 MG/DAY
     Route: 048
  3. LETROZOLE [Suspect]
     Dosage: 3 MG/DAY
     Route: 048

REACTIONS (1)
  - BLOOD TESTOSTERONE INCREASED [None]
